FAERS Safety Report 4337635-0 (Version None)
Quarter: 2004Q2

REPORT INFORMATION
  Report Type: 
  Country: None (occurrence: None)
  Receive Date: 20040412
  Receipt Date: 20040412
  Transmission Date: 20050107
  Serious: Yes (Hospitalization, Other)
  Sender: FDA-Public Use
  Company Number: None

PATIENT
  Age: 67 Year
  Sex: Male
  Weight: 120.6568 kg

DRUGS (4)
  1. CIPRO [Suspect]
     Indication: GANGRENE
     Dosage: 400 MG IV Q 24 HR
     Route: 042
     Dates: start: 20040202
  2. CIPRO [Suspect]
     Indication: POST PROCEDURAL COMPLICATION
     Dosage: 400 MG IV Q 24 HR
     Route: 042
     Dates: start: 20040202
  3. CIPRO [Suspect]
     Indication: GANGRENE
     Dosage: 400 MG IV Q 24 HR
     Route: 042
     Dates: start: 20040205
  4. CIPRO [Suspect]
     Indication: POST PROCEDURAL COMPLICATION
     Dosage: 400 MG IV Q 24 HR
     Route: 042
     Dates: start: 20040205

REACTIONS (5)
  - AGGRESSION [None]
  - AGITATION [None]
  - CONFUSIONAL STATE [None]
  - DYSARTHRIA [None]
  - HALLUCINATION [None]
